FAERS Safety Report 15933971 (Version 3)
Quarter: 2019Q1

REPORT INFORMATION
  Report Type: Spontaneous
  Country: US (occurrence: US)
  Receive Date: 20190207
  Receipt Date: 20190212
  Transmission Date: 20190417
  Serious: Yes (Other)
  Sender: FDA-Public Use
  Company Number: US-SA-2019SA032132

PATIENT
  Age: 35 Year
  Sex: Female

DRUGS (1)
  1. DUPIXENT [Suspect]
     Active Substance: DUPILUMAB
     Indication: CHOLANGITIS
     Dosage: 300 MG, QOW
     Route: 058
     Dates: start: 20180905

REACTIONS (2)
  - Liver transplant [Unknown]
  - Product use in unapproved indication [Unknown]
